FAERS Safety Report 7560382-9 (Version None)
Quarter: 2011Q2

REPORT INFORMATION
  Report Type: 
  Country: None (occurrence: None)
  Receive Date: 20110621
  Receipt Date: 20110610
  Transmission Date: 20111010
  Serious: Yes (Hospitalization)
  Sender: FDA-Public Use
  Company Number: IT-JNJFOC-20110600127

PATIENT
  Sex: Male

DRUGS (16)
  1. LASIX [Concomitant]
     Route: 065
  2. FLUTICASONE PROPIONATE [Concomitant]
     Route: 065
  3. ALLOPURINOL [Concomitant]
     Route: 065
  4. TRAMADOL HCL [Suspect]
     Indication: PAIN
     Route: 042
     Dates: start: 20110519, end: 20110519
  5. ROCALTROL [Concomitant]
     Route: 065
  6. NOVOMIX [Concomitant]
     Route: 065
  7. SUCCINYLCHOLINE CHLORIDE [Concomitant]
     Route: 065
  8. CISATRACURIUM BESILATE [Concomitant]
     Route: 065
  9. ACETAMINOPHEN [Concomitant]
     Route: 065
  10. TRAMADOL HCL [Suspect]
     Route: 042
     Dates: start: 20110520, end: 20110520
  11. FENTANYL CITRATE [Suspect]
     Indication: ANAESTHESIA
     Route: 042
     Dates: start: 20110519, end: 20110519
  12. OMNIC [Concomitant]
     Route: 065
  13. PROPOFOL [Suspect]
     Indication: ANAESTHESIA
     Route: 042
     Dates: start: 20110519, end: 20110519
  14. VALSARTAN [Concomitant]
     Route: 065
  15. MINIAS [Concomitant]
     Route: 065
  16. NOVORAPID [Concomitant]
     Route: 065

REACTIONS (3)
  - HALLUCINATION [None]
  - PSYCHOMOTOR HYPERACTIVITY [None]
  - SOPOR [None]
